FAERS Safety Report 25092141 (Version 2)
Quarter: 2025Q1

REPORT INFORMATION
  Report Type: Report from Study
  Country: US (occurrence: US)
  Receive Date: 20250319
  Receipt Date: 20250321
  Transmission Date: 20250409
  Serious: Yes (Hospitalization)
  Sender: ABBVIE
  Company Number: US-ABBVIE-6112824

PATIENT
  Age: 34 Year
  Sex: Female

DRUGS (1)
  1. SKYRIZI [Suspect]
     Active Substance: RISANKIZUMAB-RZAA
     Indication: Crohn^s disease
     Route: 058
     Dates: start: 20240103

REACTIONS (5)
  - Pre-eclampsia [Recovering/Resolving]
  - Live birth [Unknown]
  - Illness [Unknown]
  - Maternal exposure during pregnancy [Unknown]
  - Puerperal infection [Recovering/Resolving]

NARRATIVE: CASE EVENT DATE: 20240315
